FAERS Safety Report 13274086 (Version 1)
Quarter: 2017Q1

REPORT INFORMATION
  Report Type: Spontaneous
  Country: FR (occurrence: FR)
  Receive Date: 20170227
  Receipt Date: 20170227
  Transmission Date: 20170428
  Serious: Yes (Other)
  Sender: FDA-Public Use
  Company Number: FR-SA-2017SA032659

PATIENT
  Age: 45 Year
  Sex: Male

DRUGS (5)
  1. STILNOX [Suspect]
     Active Substance: ZOLPIDEM TARTRATE
     Route: 048
     Dates: end: 201606
  2. NEO-CODION (CODEINE CAMSILATE) [Suspect]
     Active Substance: CODEINE
     Dosage: 1 VIAL DOSE:1 UNIT(S)
     Route: 048
  3. OXYCODONE [Suspect]
     Active Substance: OXYCODONE
     Route: 048
     Dates: start: 20160510
  4. STILNOX [Suspect]
     Active Substance: ZOLPIDEM TARTRATE
     Route: 065
     Dates: start: 20161227
  5. OXYCODONE [Suspect]
     Active Substance: OXYCODONE
     Dosage: 40MG IN THE MORNING, 20MG IN NOON AND 20MG IN EVENING.
     Route: 048
     Dates: end: 20161227

REACTIONS (3)
  - Intentional product misuse [Unknown]
  - Anxiety [Unknown]
  - Drug dependence [Unknown]
